FAERS Safety Report 24961272 (Version 1)
Quarter: 2025Q1

REPORT INFORMATION
  Report Type: Spontaneous
  Country: KR (occurrence: KP)
  Receive Date: 20250212
  Receipt Date: 20250212
  Transmission Date: 20250409
  Serious: Yes (Life-Threatening, Other)
  Sender: INTERCHEM
  Company Number: KR-HQ SPECIALTY-KP-2025INT000016

PATIENT
  Sex: Male

DRUGS (2)
  1. DEXMEDETOMIDINE HYDROCHLORIDE [Suspect]
     Active Substance: DEXMEDETOMIDINE HYDROCHLORIDE
     Indication: Sedation
     Dosage: 0.5 MICROGRAM/KILOGRAM, QH
     Route: 042
  2. REMIFENTANIL [Concomitant]
     Active Substance: REMIFENTANIL
     Indication: Sedation
     Route: 065

REACTIONS (1)
  - Hypothermia [Recovered/Resolved]
